FAERS Safety Report 5093795-8 (Version None)
Quarter: 2006Q3

REPORT INFORMATION
  Report Type: 
  Country: None (occurrence: None)
  Receive Date: 20060831
  Receipt Date: 20060824
  Transmission Date: 20061208
  Serious: Yes (Other)
  Sender: FDA-Public Use
  Company Number: PHEH2006US10877

PATIENT
  Age: 69 Year
  Sex: Female

DRUGS (1)
  1. ZELNORM [Suspect]
     Indication: CONSTIPATION
     Dosage: 1/2 6 MG QD
     Route: 048
     Dates: start: 20050801

REACTIONS (3)
  - AMNESIA [None]
  - CONFUSIONAL STATE [None]
  - HYPOGLYCAEMIA [None]
